FAERS Safety Report 11718502 (Version 1)
Quarter: 2015Q4

REPORT INFORMATION
  Report Type: Spontaneous
  Country: US (occurrence: US)
  Receive Date: 20151110
  Receipt Date: 20151110
  Transmission Date: 20160304
  Serious: Yes (Other)
  Sender: FDA-Public Use
  Company Number: US-FRESENIUS KABI-FK201505743

PATIENT
  Age: 67 Year
  Sex: Female

DRUGS (4)
  1. DOXORUBICIN (MANUFACTURER UNKNOWN) [Suspect]
     Active Substance: DOXORUBICIN
     Indication: TRANSITIONAL CELL CARCINOMA
     Route: 065
  2. CISPLATIN (MANUFACTURER UNKNOWN) [Suspect]
     Active Substance: CISPLATIN
     Indication: TRANSITIONAL CELL CARCINOMA
     Route: 065
  3. METHOTREXATE (MANUFACTURER UNKNOWN) [Suspect]
     Active Substance: METHOTREXATE
     Indication: TRANSITIONAL CELL CARCINOMA
     Route: 065
  4. VINBLASTINE (MANUFACTURER UNKNOWN) [Suspect]
     Active Substance: VINBLASTINE
     Indication: TRANSITIONAL CELL CARCINOMA
     Route: 065

REACTIONS (1)
  - Febrile neutropenia [Unknown]
